FAERS Safety Report 4441361-7 (Version None)
Quarter: 2004Q3

REPORT INFORMATION
  Report Type: 
  Country: None (occurrence: None)
  Receive Date: 20040728
  Receipt Date: 20040429
  Transmission Date: 20050211
  Serious: No
  Sender: FDA-Public Use
  Company Number: USA040466279

PATIENT
  Age: 37 Year
  Sex: Female
  Weight: 91 kg

DRUGS (5)
  1. STRATTERA [Suspect]
     Indication: ATTENTION DEFICIT/HYPERACTIVITY DISORDER
     Dosage: 40 MG IN THE MORNING
     Dates: start: 20040429
  2. SYNTHROID [Concomitant]
  3. ZYRTEC [Concomitant]
  4. SINGULAIR [Concomitant]
  5. FLUOXETINE HCL [Concomitant]

REACTIONS (4)
  - DRY MOUTH [None]
  - FEELING ABNORMAL [None]
  - HEART RATE INCREASED [None]
  - ORTHOSTATIC HYPOTENSION [None]
